FAERS Safety Report 7832901-6 (Version None)
Quarter: 2011Q4

REPORT INFORMATION
  Report Type: 
  Country: None (occurrence: None)
  Receive Date: 20111019
  Receipt Date: 20111004
  Transmission Date: 20120403
  Serious: Yes (Other)
  Sender: FDA-Public Use
  Company Number: 2011S1001390

PATIENT
  Age: 6 Decade
  Sex: Female

DRUGS (1)
  1. LIVALO [Suspect]
     Dosage: 0.5 DF;TIW;PO
     Route: 048
     Dates: start: 20110901

REACTIONS (3)
  - INCORRECT DOSE ADMINISTERED [None]
  - NEURALGIA [None]
  - WRONG TECHNIQUE IN DRUG USAGE PROCESS [None]
